FAERS Safety Report 6255302-3 (Version None)
Quarter: 2009Q3

REPORT INFORMATION
  Report Type: 
  Country: None (occurrence: None)
  Receive Date: 20090702
  Receipt Date: 20090625
  Transmission Date: 20100115
  Serious: Yes (Hospitalization)
  Sender: FDA-Public Use
  Company Number: IT-ABBOTT-07P-083-0368693-01

PATIENT
  Sex: Female
  Weight: 55 kg

DRUGS (14)
  1. HUMIRA [Suspect]
     Indication: RHEUMATOID ARTHRITIS
     Route: 058
     Dates: start: 20050601, end: 20070506
  2. HUMIRA [Concomitant]
     Indication: RHEUMATOID ARTHRITIS
     Route: 058
     Dates: start: 20040920
  3. FOSAMAX [Concomitant]
     Indication: OSTEOPOROSIS
     Dates: start: 20010101
  4. ORBASON [Concomitant]
     Indication: RHEUMATOID ARTHRITIS
     Dates: start: 20050901
  5. LIMPIDEX [Concomitant]
     Indication: GASTRITIS
     Dates: start: 20061016
  6. METHOTREXATE [Concomitant]
     Indication: RHEUMATOID ARTHRITIS
     Dates: start: 20050501, end: 20070515
  7. FOLINA [Concomitant]
     Indication: RHEUMATOID ARTHRITIS
     Dates: start: 20050501, end: 20070515
  8. RIFADIN [Concomitant]
     Indication: BURSITIS INFECTIVE
     Dates: start: 20070501
  9. TAVANIC [Concomitant]
     Indication: BURSITIS INFECTIVE
     Dates: start: 20070501
  10. DIFLUCAN [Concomitant]
     Indication: ONYCHOMYCOSIS
     Dates: start: 20070501
  11. ATEM [Concomitant]
     Indication: ASTHMA
     Dates: start: 20070501
  12. SEREVENT [Concomitant]
     Indication: ASTHMA
     Dates: start: 20070501
  13. OXACILLINA [Concomitant]
     Indication: BURSITIS INFECTIVE
     Dates: start: 20070501, end: 20070501
  14. ANTITETANIC  VACCINATION [Concomitant]
     Indication: PROPHYLAXIS
     Dates: start: 20070501, end: 20070501

REACTIONS (1)
  - BURSITIS INFECTIVE [None]
